FAERS Safety Report 6175558-5 (Version None)
Quarter: 2009Q2

REPORT INFORMATION
  Report Type: 
  Country: None (occurrence: None)
  Receive Date: 20090429
  Receipt Date: 20090422
  Transmission Date: 20091009
  Serious: Yes (Hospitalization)
  Sender: FDA-Public Use
  Company Number: 2009SP008650

PATIENT
  Age: 31 Year
  Sex: Male

DRUGS (4)
  1. TEMODAL [Suspect]
     Indication: MALIGNANT MELANOMA
     Dosage: 250 MG; PO
     Route: 048
     Dates: start: 20090225
  2. TEMODAL [Suspect]
     Indication: MALIGNANT MELANOMA
     Dosage: 250 MG; PO
     Route: 048
     Dates: start: 20090409
  3. BEVACIZUMAB (BEVACIZUMAB) [Suspect]
     Indication: MALIGNANT MELANOMA
     Dosage: IV
     Route: 042
     Dates: start: 20090225
  4. BEVACIZUMAB (BEVACIZUMAB) [Suspect]
     Indication: MALIGNANT MELANOMA
     Dosage: IV
     Route: 042
     Dates: start: 20090407

REACTIONS (4)
  - FLANK PAIN [None]
  - METASTASIS [None]
  - NECROSIS [None]
  - PYREXIA [None]
